FAERS Safety Report 6584817-3 (Version None)
Quarter: 2010Q1

REPORT INFORMATION
  Report Type: 
  Country: None (occurrence: None)
  Receive Date: 20100217
  Receipt Date: 20100205
  Transmission Date: 20100710
  Serious: Yes (Hospitalization)
  Sender: FDA-Public Use
  Company Number: FR-JNJFOC-20100204161

PATIENT
  Age: 54 Year
  Sex: Female

DRUGS (7)
  1. PREZISTA [Suspect]
     Indication: HIV INFECTION
     Route: 048
  2. BACTRIM [Suspect]
     Indication: PNEUMOCYSTIS JIROVECI PNEUMONIA
     Route: 048
  3. VFEND [Suspect]
     Indication: RESPIRATORY MONILIASIS
     Route: 048
  4. OMEPRAZOLE [Suspect]
     Indication: ABDOMINAL PAIN UPPER
     Route: 048
  5. TRUVADA [Concomitant]
     Indication: HIV INFECTION
  6. NORVIR [Concomitant]
     Indication: HIV INFECTION
  7. DEPAKENE [Concomitant]

REACTIONS (1)
  - PANCYTOPENIA [None]
